FAERS Safety Report 9069174 (Version 6)
Quarter: 2013Q3

REPORT INFORMATION
  Report Type: Spontaneous
  Country: JP (occurrence: JP)
  Receive Date: 20130215
  Receipt Date: 20130903
  Transmission Date: 20140515
  Serious: Yes (Other)
  Sender: FDA-Public Use
  Company Number: JP-VERTEX PHARMACEUTICALS INC.-2013-001343

PATIENT
  Age: 63 Year
  Sex: Female

DRUGS (6)
  1. TELAVIC [Suspect]
     Indication: CHRONIC HEPATITIS C
     Dosage: 1500 MG, QD
     Route: 048
     Dates: start: 20121009, end: 20121031
  2. PEGINTRON [Suspect]
     Indication: CHRONIC HEPATITIS C
     Dosage: 1.5 ?G/KG, WEEK
     Route: 058
     Dates: start: 20121009, end: 20121024
  3. RIBAVIRIN [Suspect]
     Indication: CHRONIC HEPATITIS C
     Dosage: 400 MG, QD
     Route: 048
     Dates: start: 20121009, end: 20121031
  4. ISONIAZID [Suspect]
     Indication: ADVERSE REACTION
     Dosage: 300 MG, QD
     Route: 048
     Dates: start: 20121031
  5. ISONIAZID [Suspect]
     Indication: INFECTION
  6. ASPARA K [Concomitant]
     Dosage: 1800 MG, QD
     Route: 048

REACTIONS (3)
  - Tuberculous pleurisy [Not Recovered/Not Resolved]
  - Hyperuricaemia [Recovered/Resolved]
  - Neuropathy peripheral [Not Recovered/Not Resolved]
